FAERS Safety Report 17345663 (Version 1)
Quarter: 2020Q3

REPORT INFORMATION
  Report Type: Spontaneous
  Country: FR (occurrence: FR)
  Receive Date: 20200129
  Receipt Date: 20200129
  Transmission Date: 20201105
  Serious: Yes (Other)
  Sender: FDA-Public Use
  Company Number: FR-PURDUE-GBR-2020-0074507

PATIENT
  Age: 60 Year
  Sex: Female
  Weight: 72 kg

DRUGS (13)
  1. PROPOFOL. [Suspect]
     Active Substance: PROPOFOL
     Indication: INDUCTION OF ANAESTHESIA
     Dosage: 200 MG, UNK (TOTAL)
     Route: 041
     Dates: start: 20191211, end: 20191211
  2. TOPALGIC                           /00599202/ [Suspect]
     Active Substance: TRAMADOL HYDROCHLORIDE
     Indication: PAIN
     Dosage: 50 MG, UNK (TOTAL)
     Route: 041
     Dates: start: 20191211, end: 20191211
  3. CEFAZOLINE [Suspect]
     Active Substance: CEFAZOLIN SODIUM
     Indication: ANTIBIOTIC PROPHYLAXIS
     Dosage: 1 DF, DAILY
     Route: 041
     Dates: start: 20191211, end: 20191211
  4. OXYNORM [Suspect]
     Active Substance: OXYCODONE HYDROCHLORIDE
     Indication: PAIN
     Dosage: 7 MG, DAILY
     Route: 041
     Dates: start: 20191211, end: 20191211
  5. ROCURONIUM BROMIDE. [Suspect]
     Active Substance: ROCURONIUM BROMIDE
     Indication: INDUCTION OF ANAESTHESIA
     Dosage: 125 MG, UNK (TOTAL)
     Route: 041
     Dates: start: 20191211, end: 20191211
  6. XYLOCARD [Suspect]
     Active Substance: LIDOCAINE HYDROCHLORIDE
     Indication: PRODUCT USED FOR UNKNOWN INDICATION
     Dosage: 720.74 MG, DAILY
     Route: 041
     Dates: start: 20191211, end: 20191211
  7. KETAMINE HCL [Suspect]
     Active Substance: KETAMINE HYDROCHLORIDE
     Indication: ANAESTHESIA
     Dosage: 40 MG, UNK
     Route: 041
     Dates: start: 20191211, end: 20191211
  8. PARACETAMOL COX [Suspect]
     Active Substance: ACETAMINOPHEN
     Indication: PAIN
     Dosage: 1 G, UNK (TOTAL)
     Route: 041
     Dates: start: 20191211, end: 20191211
  9. DEXAMETHASONE                      /00016002/ [Suspect]
     Active Substance: DEXAMETHASONE SODIUM PHOSPHATE
     Indication: ANAESTHESIA
     Dosage: 1 DF, UNK (TOTAL)
     Route: 041
     Dates: start: 20191211, end: 20191211
  10. NORADRENALIN                       /00127502/ [Suspect]
     Active Substance: NOREPINEPHRINE BITARTRATE
     Indication: HYPOTENSION
     Dosage: 0.8 MG, UNK (TOTAL)
     Route: 041
     Dates: start: 20191211, end: 20191211
  11. VOLUVEN [Suspect]
     Active Substance: HYDROXYETHYL STARCH 130/0.4
     Indication: HYPOTENSION
     Dosage: 125 ML, UNK (TOTAL)
     Route: 041
     Dates: start: 20191211, end: 20191211
  12. EPHEDRINE. [Suspect]
     Active Substance: EPHEDRINE
     Indication: HYPOTENSION
     Dosage: 12 MG, UNK (TOTAL)
     Route: 041
     Dates: start: 20191211, end: 20191211
  13. REMIFENTANIL HYDROCHLORIDE. [Suspect]
     Active Substance: REMIFENTANIL HYDROCHLORIDE
     Indication: INDUCTION OF ANAESTHESIA
     Dosage: 50 MG, UNK (TOTAL)
     Route: 041
     Dates: start: 20191211, end: 20191211

REACTIONS (1)
  - Chorea [Recovered/Resolved]

NARRATIVE: CASE EVENT DATE: 20191211
